FAERS Safety Report 5836014-4 (Version None)
Quarter: 2008Q3

REPORT INFORMATION
  Report Type: 
  Country: None (occurrence: None)
  Receive Date: 20080805
  Receipt Date: 20080725
  Transmission Date: 20090109
  Serious: Yes (Life-Threatening)
  Sender: FDA-Public Use
  Company Number: GXKR2008JP07009

PATIENT
  Age: 49 Year
  Sex: Male
  Weight: 68 kg

DRUGS (13)
  1. CISPLATIN [Suspect]
     Indication: DIFFUSE LARGE B-CELL LYMPHOMA
     Dosage: 25 MG/M2, DAYS 2-5,
  2. ETOPOSIDE [Suspect]
     Indication: DIFFUSE LARGE B-CELL LYMPHOMA
     Dosage: 40 MG/M2, DAYS 2-5,
  3. WARFARIN SODIUM [Suspect]
     Indication: DEEP VEIN THROMBOSIS
     Dosage: 3 MG,; 8 MG/DAY, ON DAY 7,; 3 MG, ON DAY 11,; 6 MG/DAY, ON DAY 22,; 1 MG/DAY
  4. WARFARIN SODIUM [Suspect]
     Indication: PULMONARY EMBOLISM
     Dosage: 3 MG,; 8 MG/DAY, ON DAY 7,; 3 MG, ON DAY 11,; 6 MG/DAY, ON DAY 22,; 1 MG/DAY
  5. RITUXIMAB (RITUXIMAB) UNKNOWN [Concomitant]
  6. CYTARABINE [Concomitant]
  7. METHYLPREDNISOLONE [Concomitant]
  8. ZONISAMIDE (ZONISAMIDE) UNKNOWN [Concomitant]
  9. NIZATIDINE (NIZATIDINE) UNKNOWN [Concomitant]
  10. TEPRENONE (TEPRENONE) UNKNOWN [Concomitant]
  11. FLUCONAZOLE [Concomitant]
  12. SULFAMETHOXAZOLE W/TRIMETHOPRIM (SULFAMETHOXAZOLE, TRIMETHOPRIM) [Concomitant]
  13. BUCOLOME (BUCOLOME) UNKNOWN [Concomitant]

REACTIONS (2)
  - DRUG INTERACTION [None]
  - INTERNATIONAL NORMALISED RATIO INCREASED [None]
